FAERS Safety Report 10678636 (Version 2)
Quarter: 2015Q1

REPORT INFORMATION
  Report Type: Spontaneous
  Country: IT (occurrence: IT)
  Receive Date: 20141229
  Receipt Date: 20150112
  Transmission Date: 20150720
  Serious: Yes (Other)
  Sender: FDA-Public Use
  Company Number: IT-TEVA-530852ISR

PATIENT
  Age: 54 Year
  Sex: Female
  Weight: 62 kg

DRUGS (2)
  1. FLUOROURACILE TEVA [Suspect]
     Active Substance: FLUOROURACIL
     Indication: COLON CANCER
     Route: 042
     Dates: start: 20141014, end: 20141119
  2. OXALIPLATINO SUN [Suspect]
     Active Substance: OXALIPLATIN
     Indication: COLON CANCER
     Dosage: CONCENTRATE FOR SOLUTION FOR INTRAVENOUS INFUSION.
     Route: 042
     Dates: start: 20141014, end: 20141119

REACTIONS (4)
  - Dyspnoea [Recovered/Resolved]
  - Abdominal pain [Recovered/Resolved]
  - Tremor [Recovered/Resolved]
  - Malaise [Recovered/Resolved]

NARRATIVE: CASE EVENT DATE: 20141119
